FAERS Safety Report 9465563 (Version 1)
Quarter: 2013Q3

REPORT INFORMATION
  Report Type: Spontaneous
  Country: US (occurrence: US)
  Receive Date: 20130820
  Receipt Date: 20130820
  Transmission Date: 20140515
  Serious: Yes (Hospitalization)
  Sender: FDA-Public Use
  Company Number: US-JNJFOC-20130806549

PATIENT
  Age: 78 Year
  Sex: Female
  Weight: 90.72 kg

DRUGS (7)
  1. XARELTO [Suspect]
     Indication: THROMBOSIS
     Route: 048
     Dates: start: 20130809
  2. XARELTO [Suspect]
     Indication: THROMBOSIS
     Route: 048
     Dates: start: 201307, end: 201308
  3. ASPIRIN [Concomitant]
     Indication: CARDIAC DISORDER
     Route: 048
  4. NEURONTIN [Concomitant]
     Indication: PAIN
     Route: 048
     Dates: start: 2007
  5. METHADONE [Concomitant]
     Indication: PAIN
     Route: 048
     Dates: start: 2007
  6. DILAUDID [Concomitant]
     Indication: PAIN
     Route: 048
     Dates: start: 2007
  7. ENALAPRIL [Concomitant]
     Route: 048

REACTIONS (8)
  - Hospitalisation [Unknown]
  - Musculoskeletal pain [Not Recovered/Not Resolved]
  - Muscle spasms [Not Recovered/Not Resolved]
  - Urine output increased [Not Recovered/Not Resolved]
  - Diarrhoea [Not Recovered/Not Resolved]
  - Constipation [Not Recovered/Not Resolved]
  - Wrong technique in drug usage process [Not Recovered/Not Resolved]
  - Drug dose omission [Recovered/Resolved]
